FAERS Safety Report 7999811-5 (Version None)
Quarter: 2011Q4

REPORT INFORMATION
  Report Type: 
  Country: None (occurrence: None)
  Receive Date: 20111222
  Receipt Date: 20111215
  Transmission Date: 20120403
  Serious: Yes (Other)
  Sender: FDA-Public Use
  Company Number: US-BIOGENIDEC-2011BI045860

PATIENT
  Age: 57 Year
  Sex: Female

DRUGS (3)
  1. ACETAMINOPHEN [Concomitant]
     Indication: PREMEDICATION
     Dates: start: 20080101
  2. AVONEX [Suspect]
     Indication: MULTIPLE SCLEROSIS
     Route: 030
     Dates: start: 20080101
  3. REBIF [Concomitant]
     Indication: MULTIPLE SCLEROSIS
     Dates: start: 20110101, end: 20110101

REACTIONS (10)
  - BLISTER [None]
  - PRURITUS [None]
  - FATIGUE [None]
  - DYSARTHRIA [None]
  - MUSCLE SPASMS [None]
  - ABASIA [None]
  - DISORIENTATION [None]
  - EAR PRURITUS [None]
  - PYREXIA [None]
  - CHILLS [None]
